APPROVED DRUG PRODUCT: DEXTROSE 70% IN PLASTIC CONTAINER
Active Ingredient: DEXTROSE
Strength: 70GM/100ML
Dosage Form/Route: INJECTABLE;INJECTION
Application: N020047 | Product #003 | TE Code: AP
Applicant: BAXTER HEALTHCARE CORP
Approved: Jul 2, 1991 | RLD: Yes | RS: Yes | Type: RX